FAERS Safety Report 24465717 (Version 1)
Quarter: 2024Q4

REPORT INFORMATION
  Report Type: Report from Study
  Country: US (occurrence: US)
  Receive Date: 20241018
  Receipt Date: 20241018
  Transmission Date: 20250114
  Serious: No
  Sender: ROCHE
  Company Number: US-ROCHE-3535644

PATIENT

DRUGS (9)
  1. XOLAIR [Suspect]
     Active Substance: OMALIZUMAB
     Indication: Asthma
     Dosage: DOSE: 300MG/2ML
     Route: 058
  2. XOLAIR [Suspect]
     Active Substance: OMALIZUMAB
  3. LISINOPRIL [Concomitant]
     Active Substance: LISINOPRIL
     Route: 048
  4. ALBUTEROL SULFATE [Concomitant]
     Active Substance: ALBUTEROL SULFATE
     Dosage: 2.5MG/3ML
  5. ALBUTEROL SULFATE [Concomitant]
     Active Substance: ALBUTEROL SULFATE
     Dosage: AEROSOL SOLUTION 1 PUFF
  6. MONTELUKAST SODIUM [Concomitant]
     Active Substance: MONTELUKAST SODIUM
  7. SERTRALINE HYDROCHLORIDE [Concomitant]
     Active Substance: SERTRALINE HYDROCHLORIDE
     Route: 048
  8. PREDNISONE [Concomitant]
     Active Substance: PREDNISONE
  9. EPIPEN [Concomitant]
     Active Substance: EPINEPHRINE

REACTIONS (2)
  - Off label use [Unknown]
  - No adverse event [Unknown]
